FAERS Safety Report 13455254 (Version 2)
Quarter: 2017Q2

REPORT INFORMATION
  Report Type: Spontaneous
  Country: US (occurrence: US)
  Receive Date: 20170419
  Receipt Date: 20170531
  Transmission Date: 20170830
  Serious: Yes (Other)
  Sender: FDA-Public Use
  Company Number: US-PFIZER INC-2017156900

PATIENT
  Age: 66 Year
  Sex: Female

DRUGS (41)
  1. IBRANCE [Suspect]
     Active Substance: PALBOCICLIB
     Indication: BREAST CANCER FEMALE
     Dosage: 75 MG, CYCLIC(DAILY X 21 DAYS (7 OFF))
     Route: 048
     Dates: start: 201604
  2. ATENOLOL AND CHLORTHALIDONE [Concomitant]
     Active Substance: ATENOLOL\CHLORTHALIDONE
     Dosage: 1 DF, 1X/DAY[ATENOLOL: 100 MG]-[ CHLORTALIDONE: 25 MG]
     Route: 048
  3. NEULASTA [Concomitant]
     Active Substance: PEGFILGRASTIM
     Dosage: UNK UNK, DAILY(QD)
     Route: 058
  4. LOVENOX [Concomitant]
     Active Substance: ENOXAPARIN SODIUM
     Dosage: 60 MG, 2X/DAY
     Route: 058
  5. ZOLOFT [Concomitant]
     Active Substance: SERTRALINE HYDROCHLORIDE
     Indication: EMOTIONAL DISTRESS
     Dosage: UNK
  6. ALBUTEROL W/IPRATROPIUM [Concomitant]
     Active Substance: ALBUTEROL\IPRATROPIUM
     Indication: VASCULAR COMPRESSION
  7. ALBUTEROL W/IPRATROPIUM [Concomitant]
     Active Substance: ALBUTEROL\IPRATROPIUM
     Indication: BREAST CANCER FEMALE
  8. LETROZOLE. [Concomitant]
     Active Substance: LETROZOLE
     Dosage: 2.5 MG, 1X/DAY
     Route: 048
     Dates: start: 201604
  9. OMEPRAZOLE. [Concomitant]
     Active Substance: OMEPRAZOLE
     Dosage: 40 MG, DAILY
     Route: 048
  10. BABY ASPIRIN [Concomitant]
     Active Substance: ASPIRIN
     Dosage: UNK UNK, DAILY
     Route: 048
     Dates: start: 20170120
  11. IBRANCE [Suspect]
     Active Substance: PALBOCICLIB
     Dosage: 100 MG, CYCLIC (QD FOR 21 DAYS (7 DAYS OFF))
     Route: 048
     Dates: start: 20160404
  12. ATIVAN [Concomitant]
     Active Substance: LORAZEPAM
     Dosage: 0.5 MG, AS NEEDED
  13. BROVANA [Concomitant]
     Active Substance: ARFORMOTEROL TARTRATE
     Indication: PULMONARY MASS
  14. PROAIR HFA [Concomitant]
     Active Substance: ALBUTEROL SULFATE
     Indication: WHEEZING
     Dosage: UNK UNK, AS NEEDED(90 MCG/ACTUATION AEROSOL INHALER)/(2 PUFFS INH Q 4 HRS PRN )
  15. INCRUSE ELLIPTA [Concomitant]
     Active Substance: UMECLIDINIUM BROMIDE
     Dosage: UNK UNK, AS NEEDED(62.5 MCG/ACTUATION POWDER FOR INHALATION)
  16. PROAIR HFA [Concomitant]
     Active Substance: ALBUTEROL SULFATE
     Indication: DYSPNOEA
  17. NEUPOGEN [Concomitant]
     Active Substance: FILGRASTIM
     Dosage: 300 UG, DAILY
     Route: 058
     Dates: start: 201511
  18. HYCODAN [Concomitant]
     Active Substance: HOMATROPINE METHYLBROMIDE\HYDROCODONE BITARTRATE
     Indication: COUGH
     Dosage: UNK UNK, AS NEEDED(PRN/1-2 PER DAY)
  19. PROLIA [Concomitant]
     Active Substance: DENOSUMAB
     Dosage: UNK(Q 6 MONTHS)
     Dates: start: 20161129
  20. IBRANCE [Suspect]
     Active Substance: PALBOCICLIB
     Dosage: 100 MG, CYCLIC (QD FOR 21 DAYS (7 DAYS OFF))
     Route: 048
     Dates: start: 20160411
  21. ALBUTEROL SULFATE. [Concomitant]
     Active Substance: ALBUTEROL SULFATE
     Dosage: 1 DF, AS NEEDED(Q 4 H PRN)
  22. BROVANA [Concomitant]
     Active Substance: ARFORMOTEROL TARTRATE
     Indication: LUNG NEOPLASM MALIGNANT
  23. HYDROCODONE BIT. AND HOMATROPINE METH. [Concomitant]
     Dosage: 1 DF, AS NEEDED[HYDROCODONE BITARTRATE: 5 MG]- [HOMATROPINE METHYLBROMIDE: 1.5 MG]
  24. ALBUTEROL W/IPRATROPIUM [Concomitant]
     Active Substance: ALBUTEROL\IPRATROPIUM
     Indication: DYSPNOEA
     Dosage: 1 DF, AS NEEDED[IPRATROPIUM: 0.5 MG]- [ALBUTEROL: 3 MG]
  25. ALBUTEROL W/IPRATROPIUM [Concomitant]
     Active Substance: ALBUTEROL\IPRATROPIUM
     Indication: CHRONIC OBSTRUCTIVE PULMONARY DISEASE
  26. ALBUTEROL W/IPRATROPIUM [Concomitant]
     Active Substance: ALBUTEROL\IPRATROPIUM
     Indication: PULMONARY MASS
  27. ARIMIDEX [Concomitant]
     Active Substance: ANASTROZOLE
     Dosage: 1 MG, DAILY
     Route: 048
  28. HYCODAN [Concomitant]
     Active Substance: HOMATROPINE METHYLBROMIDE\HYDROCODONE BITARTRATE
     Dosage: UNK
  29. HYCODAN [Concomitant]
     Active Substance: HOMATROPINE METHYLBROMIDE\HYDROCODONE BITARTRATE
     Dosage: UNK UNK, AS NEEDED(PRN/1-2 PER DAY)
     Dates: start: 20161222
  30. PALBOCICLIB [Suspect]
     Active Substance: PALBOCICLIB
     Indication: BREAST CANCER FEMALE
     Dosage: 100 MG, CYCLIC(DAILY X 21 DAY^S (7 DAY^S OFF))
     Route: 048
     Dates: start: 20160411
  31. ASPIRIN. [Concomitant]
     Active Substance: ASPIRIN
     Dosage: 81 MG, 1X/DAY
     Route: 048
  32. BROVANA [Concomitant]
     Active Substance: ARFORMOTEROL TARTRATE
     Indication: CHRONIC OBSTRUCTIVE PULMONARY DISEASE
     Dosage: 1 DF, 2X/DAY
  33. VICODIN [Concomitant]
     Active Substance: ACETAMINOPHEN\HYDROCODONE BITARTRATE
     Indication: PAIN
     Dosage: UNK UNK, AS NEEDED(Q 4 H PRN)[HYDROCODONE BITARTRATE: 5 MG]- [PARACETAMOL: 300 MG]
  34. TESSALON [Concomitant]
     Active Substance: BENZONATATE
     Indication: COUGH
     Dosage: 200 MG, AS NEEDED(TID PRN)
  35. XARELTO [Concomitant]
     Active Substance: RIVAROXABAN
     Dosage: 20 MG, DAILY
     Route: 048
  36. BROVANA [Concomitant]
     Active Substance: ARFORMOTEROL TARTRATE
     Indication: VASCULAR COMPRESSION
  37. BROVANA [Concomitant]
     Active Substance: ARFORMOTEROL TARTRATE
     Indication: BREAST CANCER FEMALE
  38. ALBUTEROL W/IPRATROPIUM [Concomitant]
     Active Substance: ALBUTEROL\IPRATROPIUM
     Indication: LUNG NEOPLASM MALIGNANT
  39. OXYGEN. [Concomitant]
     Active Substance: OXYGEN
     Dosage: 2 IU, UNK
  40. POTASSIUM CHLORIDE. [Concomitant]
     Active Substance: POTASSIUM CHLORIDE
     Dosage: 20 MEQ, 1X/DAY
     Route: 048
  41. SENNA [Concomitant]
     Active Substance: SENNA LEAF\SENNOSIDES\SENNOSIDES A AND B
     Dosage: 17.2 MG, AS NEEDED(2 CAPS P.O. Q. DAY PRN)
     Route: 048

REACTIONS (2)
  - Cytopenia [Unknown]
  - Thrombocytopenia [Recovered/Resolved]
